FAERS Safety Report 4284423-X (Version None)
Quarter: 2004Q1

REPORT INFORMATION
  Report Type: 
  Country: None (occurrence: None)
  Receive Date: 20040130
  Receipt Date: 20040109
  Transmission Date: 20041129
  Serious: Yes (Disabling, Other)
  Sender: FDA-Public Use
  Company Number: US_040199862

PATIENT
  Age: 24 Year
  Sex: Male
  Weight: 83 kg

DRUGS (2)
  1. HUMALOG [Suspect]
     Indication: DIABETES MELLITUS
     Dosage: 4 U
  2. INSULIN GLARGINE [Concomitant]

REACTIONS (5)
  - DEAFNESS [None]
  - EAR INFECTION [None]
  - OTORRHOEA [None]
  - PHARMACEUTICAL PRODUCT COMPLAINT [None]
  - TYMPANIC MEMBRANE PERFORATION [None]
